FAERS Safety Report 15558574 (Version 1)
Quarter: 2018Q4

REPORT INFORMATION
  Report Type: Report from Study
  Country: SA (occurrence: SA)
  Receive Date: 20181028
  Receipt Date: 20181028
  Transmission Date: 20190205
  Serious: Yes (Other)
  Sender: FDA-Public Use
  Company Number: PHHY2018SA133820

PATIENT
  Age: 54 Year
  Sex: Female
  Weight: 66.7 kg

DRUGS (9)
  1. ACETAMINOPHEN. [Concomitant]
     Active Substance: ACETAMINOPHEN
     Indication: PRODUCT USED FOR UNKNOWN INDICATION
     Dosage: 1000MG/Q4 PRN
     Route: 042
     Dates: start: 20180503, end: 20180504
  2. POTASSIUM CHLORIDE. [Concomitant]
     Active Substance: POTASSIUM CHLORIDE
     Indication: PRODUCT USED FOR UNKNOWN INDICATION
     Dosage: 40 MMOL/Q6
     Route: 048
     Dates: start: 20180511, end: 20180514
  3. POTASSIUM CHLORIDE. [Concomitant]
     Active Substance: POTASSIUM CHLORIDE
     Dosage: 40 MMOL, PRN
     Route: 042
     Dates: start: 20180511, end: 20180514
  4. PKC412 [Suspect]
     Active Substance: MIDOSTAURIN
     Indication: ACUTE MYELOID LEUKAEMIA
     Route: 048
  5. VANCOMYCIN [Suspect]
     Active Substance: VANCOMYCIN
     Indication: PRODUCT USED FOR UNKNOWN INDICATION
     Route: 065
  6. VENTOLIN [Concomitant]
     Active Substance: ALBUTEROL SULFATE
     Indication: WHEEZING
     Dosage: 2.5 MG, UNK
     Route: 055
     Dates: start: 20180501, end: 20180520
  7. METOPROLOL. [Concomitant]
     Active Substance: METOPROLOL
     Indication: PRODUCT USED FOR UNKNOWN INDICATION
     Dosage: 12.5 MG, BID
     Route: 048
     Dates: start: 20180524
  8. LASIX [Concomitant]
     Active Substance: FUROSEMIDE
     Indication: POLYURIA
     Dosage: 20 MG, PRN
     Route: 042
     Dates: start: 20180502, end: 20180509
  9. MEROPENEM. [Concomitant]
     Active Substance: MEROPENEM
     Indication: PRODUCT USED FOR UNKNOWN INDICATION
     Dosage: 1000MG/Q8
     Route: 042
     Dates: start: 20180423, end: 20180508

REACTIONS (31)
  - Pulmonary haemorrhage [Unknown]
  - Tachypnoea [Recovering/Resolving]
  - Pyrexia [Recovered/Resolved]
  - Mitral valve incompetence [Recovering/Resolving]
  - Lung consolidation [Unknown]
  - Cough [Recovered/Resolved]
  - Hypersensitivity [Recovered/Resolved]
  - Tachycardia [Recovering/Resolving]
  - Mastoiditis [Recovered/Resolved]
  - Vomiting [Recovered/Resolved]
  - Epistaxis [Recovered/Resolved]
  - Oxygen saturation decreased [Recovered/Resolved]
  - Hepatic vein thrombosis [Recovering/Resolving]
  - Sepsis [Recovered/Resolved]
  - Hypokalaemia [Recovered/Resolved]
  - Red man syndrome [Recovered/Resolved]
  - Lung infection [Unknown]
  - Pulmonary mass [Unknown]
  - Crepitations [Unknown]
  - Sputum discoloured [Unknown]
  - Pruritus generalised [Unknown]
  - Diarrhoea [Recovered/Resolved]
  - Malaise [Unknown]
  - Wheezing [Unknown]
  - Chills [Unknown]
  - Respiratory failure [Unknown]
  - Otitis externa [Unknown]
  - Cellulitis [Recovered/Resolved]
  - Haemoptysis [Unknown]
  - Heart rate increased [Unknown]
  - Pruritus [Unknown]

NARRATIVE: CASE EVENT DATE: 20180427
